FAERS Safety Report 9771067 (Version 3)
Quarter: 2014Q2

REPORT INFORMATION
  Report Type: Spontaneous
  Country: US (occurrence: US)
  Receive Date: 20131218
  Receipt Date: 20140403
  Transmission Date: 20141212
  Serious: Yes (Other)
  Sender: FDA-Public Use
  Company Number: US-PFIZER INC-2013361696

PATIENT
  Age: 7 Year
  Sex: Male

DRUGS (3)
  1. QUILLIVANT XR [Suspect]
     Indication: ATTENTION DEFICIT/HYPERACTIVITY DISORDER
     Dosage: 6 ML (30MG), 1X/DAY
     Route: 048
     Dates: start: 20130719, end: 20131211
  2. QUILLIVANT XR [Suspect]
     Dosage: UNK
     Route: 048
     Dates: start: 2013, end: 2013
  3. QUILLIVANT XR [Suspect]
     Dosage: UNK, 2X/DAY
     Route: 048
     Dates: start: 2013

REACTIONS (5)
  - Haemorrhage [Recovered/Resolved]
  - Wound [Recovered/Resolved]
  - Contusion [Recovered/Resolved]
  - Drug ineffective [Unknown]
  - Scab [Recovered/Resolved]
